FAERS Safety Report 6408262-6 (Version None)
Quarter: 2009Q4

REPORT INFORMATION
  Report Type: 
  Country: None (occurrence: None)
  Receive Date: 20091021
  Receipt Date: 20091009
  Transmission Date: 20100525
  Serious: Yes (Other)
  Sender: FDA-Public Use
  Company Number: FR-PFIZER INC-2009281324

PATIENT
  Age: 40 Year

DRUGS (1)
  1. TRIFLUCAN [Suspect]
     Indication: ORAL CANDIDIASIS
     Dosage: 50 MG, 1X/DAY
     Dates: start: 20090901, end: 20090901

REACTIONS (1)
  - EXTRASYSTOLES [None]
